FAERS Safety Report 4908742-6 (Version None)
Quarter: 2006Q1

REPORT INFORMATION
  Report Type: 
  Country: None (occurrence: None)
  Receive Date: 20060210
  Receipt Date: 20051104
  Transmission Date: 20060701
  Serious: No
  Sender: FDA-Public Use
  Company Number: US-GLAXOSMITHKLINE-A0580920A

PATIENT
  Age: 30 Year
  Sex: Female

DRUGS (4)
  1. PAXIL CR [Suspect]
     Indication: PANIC DISORDER
     Dosage: 12.5MG PER DAY
     Route: 048
     Dates: start: 20040101
  2. TRICYCLIC ANTIDEPRESSANT [Suspect]
     Route: 065
     Dates: start: 20051026, end: 20051029
  3. FLEXERIL [Concomitant]
  4. PERCOCET [Concomitant]

REACTIONS (4)
  - HYPERHIDROSIS [None]
  - INITIAL INSOMNIA [None]
  - INSOMNIA [None]
  - PAIN [None]
